FAERS Safety Report 6358412-5 (Version None)
Quarter: 2009Q3

REPORT INFORMATION
  Report Type: 
  Country: None (occurrence: None)
  Receive Date: 20090916
  Receipt Date: 20090901
  Transmission Date: 20100115
  Serious: Yes (Other)
  Sender: FDA-Public Use
  Company Number: PT-GENENTECH-290222

PATIENT
  Age: 61 Year
  Sex: Male

DRUGS (3)
  1. AVASTIN [Suspect]
     Indication: DRUG USE FOR UNKNOWN INDICATION
     Dosage: 15 MG/KG, UNK
     Route: 065
  2. CARBOPLATIN [Suspect]
     Indication: DRUG USE FOR UNKNOWN INDICATION
     Route: 065
  3. PACLITAXEL [Suspect]
     Indication: DRUG USE FOR UNKNOWN INDICATION
     Dosage: 200 MG/M2, UNK
     Route: 065

REACTIONS (6)
  - CACHEXIA [None]
  - CHEST PAIN [None]
  - DISEASE PROGRESSION [None]
  - EPISTAXIS [None]
  - FATIGUE [None]
  - HYPERTENSION [None]
